FAERS Safety Report 10098250 (Version 3)
Quarter: 2017Q2

REPORT INFORMATION
  Report Type: Spontaneous
  Country: AT (occurrence: AT)
  Receive Date: 20140423
  Receipt Date: 20170530
  Transmission Date: 20170829
  Serious: Yes (Other)
  Sender: FDA-Public Use
  Company Number: AT-JNJFOC-20140408148

PATIENT
  Age: 84 Year
  Sex: Male

DRUGS (2)
  1. PREDNISOLONE. [Concomitant]
     Active Substance: PREDNISOLONE
     Route: 065
  2. ZYTIGA [Suspect]
     Active Substance: ABIRATERONE ACETATE
     Indication: PRODUCT USED FOR UNKNOWN INDICATION
     Route: 048
     Dates: start: 201103

REACTIONS (3)
  - Metastasis [Unknown]
  - Urinary retention [Unknown]
  - Lymphoedema [Unknown]

NARRATIVE: CASE EVENT DATE: 201305
